FAERS Safety Report 4558562-X (Version None)
Quarter: 2005Q1

REPORT INFORMATION
  Report Type: 
  Country: None (occurrence: None)
  Receive Date: 20050121
  Receipt Date: 20050112
  Transmission Date: 20050727
  Serious: Yes (Death, Hospitalization, Other)
  Sender: FDA-Public Use
  Company Number: SE-BRISTOL-MYERS SQUIBB COMPANY-12824686

PATIENT
  Age: 26 Year
  Sex: Female

DRUGS (20)
  1. VIDEX EC [Suspect]
     Indication: HIV INFECTION
     Route: 048
     Dates: start: 20040101, end: 20040601
  2. EPIVIR [Suspect]
     Indication: HIV INFECTION
     Dates: start: 20040101
  3. STOCRIN TABS 600 MG [Concomitant]
  4. MOVICOL [Concomitant]
  5. AMBIRIX [Concomitant]
  6. EMCONCOR [Concomitant]
  7. FOLACIN [Concomitant]
  8. ACETAMINOPHEN [Concomitant]
  9. BACTRIM [Concomitant]
  10. IMPUGAN [Concomitant]
  11. PETIDIN [Concomitant]
  12. SPIRONOLAKTON [Concomitant]
  13. PREDNISOLONE [Concomitant]
  14. DUPHALAC [Concomitant]
  15. OXASCAND [Concomitant]
  16. LANSOPRAZOLE [Concomitant]
  17. STILNOCT [Concomitant]
  18. KETOGAN [Concomitant]
  19. OXYCONTIN [Concomitant]
  20. TAVANIC [Concomitant]

REACTIONS (15)
  - ABDOMINAL PAIN [None]
  - ANAEMIA [None]
  - ANURIA [None]
  - CARDIAC ARREST [None]
  - CEREBRAL HAEMORRHAGE [None]
  - FUNGAL INFECTION [None]
  - HEPATOMEGALY [None]
  - LACTIC ACIDOSIS [None]
  - LYMPHADENOPATHY [None]
  - MULTI-ORGAN FAILURE [None]
  - PNEUMONIA LEGIONELLA [None]
  - PORTAL HYPERTENSION [None]
  - SEPSIS [None]
  - SPLENOMEGALY [None]
  - THROMBOCYTOPENIA [None]
